FAERS Safety Report 8051642-6 (Version None)
Quarter: 2012Q1

REPORT INFORMATION
  Report Type: 
  Country: None (occurrence: None)
  Receive Date: 20120118
  Receipt Date: 20120104
  Transmission Date: 20120608
  Serious: No
  Sender: FDA-Public Use
  Company Number: US-BIOGENIDEC-2011BI012584

PATIENT
  Sex: Female

DRUGS (3)
  1. TYSABRI [Suspect]
     Indication: MULTIPLE SCLEROSIS
     Route: 042
     Dates: start: 20100405, end: 20100405
  2. TYSABRI [Suspect]
     Route: 042
     Dates: start: 20110307
  3. AVONEX [Concomitant]
     Indication: MULTIPLE SCLEROSIS
     Route: 030
     Dates: start: 20041006

REACTIONS (16)
  - FEELING ABNORMAL [None]
  - MENTAL IMPAIRMENT [None]
  - DYSGRAPHIA [None]
  - HEADACHE [None]
  - BALANCE DISORDER [None]
  - FATIGUE [None]
  - MUSCLE SPASMS [None]
  - FALL [None]
  - PERONEAL NERVE PALSY [None]
  - MULTIPLE SCLEROSIS RELAPSE [None]
  - MEMORY IMPAIRMENT [None]
  - SCOLIOSIS [None]
  - MOOD SWINGS [None]
  - TREMOR [None]
  - TENSION [None]
  - SPEECH DISORDER [None]
